FAERS Safety Report 17684337 (Version 1)
Quarter: 2020Q2

REPORT INFORMATION
  Report Type: Spontaneous
  Country: US (occurrence: US)
  Receive Date: 20200420
  Receipt Date: 20200420
  Transmission Date: 20200714
  Serious: No
  Sender: FDA-Public Use
  Company Number: US-ASTRAZENECA-2020SE44771

PATIENT
  Age: 12 Year
  Sex: Female

DRUGS (1)
  1. PULMICORT RESPULES [Suspect]
     Active Substance: BUDESONIDE
     Indication: EOSINOPHILIC OESOPHAGITIS
     Route: 055
     Dates: start: 20200313

REACTIONS (7)
  - Diarrhoea [Unknown]
  - Anal incontinence [Unknown]
  - Fatigue [Unknown]
  - Increased appetite [Not Recovered/Not Resolved]
  - Abdominal pain [Unknown]
  - Sleep disorder [Unknown]
  - Product use issue [Unknown]

NARRATIVE: CASE EVENT DATE: 202003
